FAERS Safety Report 12133666 (Version 2)
Quarter: 2017Q4

REPORT INFORMATION
  Report Type: Report from Study
  Country: US (occurrence: US)
  Receive Date: 20160301
  Receipt Date: 20171108
  Transmission Date: 20180320
  Serious: Yes (Other)
  Sender: FDA-Public Use
  Company Number: PHEH2016US004809

PATIENT
  Sex: Female

DRUGS (1)
  1. COSENTYX [Suspect]
     Active Substance: SECUKINUMAB
     Indication: PSORIASIS
     Dosage: 300 MG, QMO
     Route: 065
     Dates: start: 20150901

REACTIONS (6)
  - Inappropriate schedule of drug administration [Unknown]
  - Drug effect incomplete [Unknown]
  - Depression [Unknown]
  - Ill-defined disorder [Unknown]
  - Bipolar disorder [Unknown]
  - Rash [Unknown]
